FAERS Safety Report 8789720 (Version 1)
Quarter: 2012Q4

REPORT INFORMATION
  Report Type: 
  Country: US (occurrence: None)
  Receive Date: 20120905
  Receipt Date: 20120905
  Transmission Date: 20130627
  Serious: Yes (Life-Threatening, Other)
  Sender: FDA-Public Use
  Company Number: 2012SP001426

PATIENT
  Age: 19 Year
  Sex: Male

DRUGS (1)
  1. ETOMIDATE [Suspect]
     Indication: DRUG USE FOR UNKNOWN INDICATION

REACTIONS (4)
  - Anaphylactic reaction [None]
  - Cardiopulmonary failure [None]
  - Arterial haemorrhage [None]
  - Cerebrovascular accident [None]
